FAERS Safety Report 4680873-8 (Version None)
Quarter: 2005Q2

REPORT INFORMATION
  Report Type: 
  Country: None (occurrence: None)
  Receive Date: 20050601
  Receipt Date: 20050601
  Transmission Date: 20051028
  Serious: Yes (Other)
  Sender: FDA-Public Use
  Company Number: None

PATIENT
  Age: 56 Year
  Sex: Male
  Weight: 77 kg

DRUGS (4)
  1. CINACALCET [Suspect]
     Indication: HYPERPARATHYROIDISM SECONDARY
     Dosage: 30 MG PO Q DAY
     Route: 048
     Dates: start: 20050201, end: 20050401
  2. ATENTOLOL [Concomitant]
  3. FUROSEMIDE [Concomitant]
  4. LOSARTAN [Concomitant]

REACTIONS (3)
  - ERYTHEMA [None]
  - PHOTOSENSITIVITY REACTION [None]
  - SKIN ULCER [None]
